FAERS Safety Report 21912657 (Version 1)
Quarter: 2023Q1

REPORT INFORMATION
  Report Type: Spontaneous
  Country: US (occurrence: US)
  Receive Date: 20230125
  Receipt Date: 20230125
  Transmission Date: 20230418
  Serious: No
  Sender: FDA-Public Use
  Company Number: US-ALLERGAN-2236244US

PATIENT
  Sex: Female

DRUGS (4)
  1. BOTOX [Suspect]
     Active Substance: ONABOTULINUMTOXINA
     Indication: Product used for unknown indication
     Dosage: 20 UNITS, SINGLE
  2. JUVEDERM [Concomitant]
     Active Substance: HYALURONIC ACID
     Dosage: UNK
     Dates: start: 202109, end: 202109
  3. JUVEDERM [Concomitant]
     Active Substance: HYALURONIC ACID
     Dosage: UNK
     Dates: start: 202111, end: 202111
  4. JUVEDERM [Concomitant]
     Active Substance: HYALURONIC ACID
     Dosage: UNK
     Dates: start: 2022, end: 2022

REACTIONS (1)
  - Hypoaesthesia [Unknown]
